FAERS Safety Report 12901578 (Version 1)
Quarter: 2016Q4

REPORT INFORMATION
  Report Type: Spontaneous
  Country: US (occurrence: US)
  Receive Date: 20161102
  Receipt Date: 20161102
  Transmission Date: 20170207
  Serious: No
  Sender: FDA-Public Use
  Company Number: US-ASTRAZENECA-2016SF11780

PATIENT
  Age: 58 Year
  Sex: Female

DRUGS (5)
  1. SYMBICORT [Suspect]
     Active Substance: BUDESONIDE\FORMOTEROL FUMARATE DIHYDRATE
     Indication: CHRONIC OBSTRUCTIVE PULMONARY DISEASE
     Dosage: 160/4.5 MCG, UNKNOWN FREQUENCY
     Route: 055
  2. SPIRIVA [Concomitant]
     Active Substance: TIOTROPIUM BROMIDE MONOHYDRATE
  3. DUONEB [Concomitant]
     Active Substance: ALBUTEROL SULFATE\IPRATROPIUM BROMIDE
     Dosage: EVERY FOUR HOURS
  4. PREDNISONE. [Concomitant]
     Active Substance: PREDNISONE
     Dosage: 20, DAILY
  5. MUCINEX [Concomitant]
     Active Substance: GUAIFENESIN
     Dosage: 1200, TWO TIMES A DAY

REACTIONS (1)
  - Dyspnoea [Unknown]
